FAERS Safety Report 6554078-X (Version None)
Quarter: 2010Q1

REPORT INFORMATION
  Report Type: 
  Country: None (occurrence: None)
  Receive Date: 20100127
  Receipt Date: 20100119
  Transmission Date: 20100710
  Serious: Yes (Other)
  Sender: FDA-Public Use
  Company Number: DE-GENENTECH-297215

PATIENT
  Sex: Female

DRUGS (2)
  1. ACTIVASE [Suspect]
     Indication: ISCHAEMIC STROKE
     Dosage: UNK
     Route: 042
     Dates: start: 20100107
  2. ACTIVASE [Suspect]
     Indication: APHASIA

REACTIONS (2)
  - CONVULSION [None]
  - ENCEPHALITIS VIRAL [None]
